FAERS Safety Report 10502242 (Version 1)
Quarter: 2014Q4

REPORT INFORMATION
  Report Type: Spontaneous
  Country: US (occurrence: US)
  Receive Date: 20141007
  Receipt Date: 20141007
  Transmission Date: 20150528
  Serious: Yes (Death, Disabling, Other)
  Sender: FDA-Public Use
  Company Number: US-TEVA-512630USA

PATIENT
  Sex: Female

DRUGS (4)
  1. SULFAMETHOXAZOLE [Suspect]
     Active Substance: SULFAMETHOXAZOLE
     Route: 065
  2. MACROBID [Suspect]
     Active Substance: NITROFURANTOIN\NITROFURANTOIN MONOHYDRATE
     Route: 065
  3. NITROFURANTOIN. [Suspect]
     Active Substance: NITROFURANTOIN
  4. MACRODANTIN [Suspect]
     Active Substance: NITROFURANTOIN
     Route: 065

REACTIONS (7)
  - Liver injury [Unknown]
  - Death [Fatal]
  - Lung disorder [Unknown]
  - Blood creatinine increased [Unknown]
  - Renal impairment [Unknown]
  - Hepatic cirrhosis [Unknown]
  - Acute kidney injury [Unknown]
